FAERS Safety Report 19183529 (Version 5)
Quarter: 2021Q4

REPORT INFORMATION
  Report Type: Report from Study
  Country: US (occurrence: US)
  Receive Date: 20210427
  Receipt Date: 20211229
  Transmission Date: 20220303
  Serious: Yes (Other)
  Sender: FDA-Public Use
  Company Number: NVSC2021US086911

PATIENT
  Sex: Male

DRUGS (1)
  1. ENTRESTO [Suspect]
     Active Substance: SACUBITRIL\VALSARTAN
     Indication: Cardiomyopathy
     Dosage: 0.5 DF, BID
     Route: 048
     Dates: start: 20210313

REACTIONS (8)
  - Ischaemic cardiomyopathy [Unknown]
  - Weight increased [Unknown]
  - Weight fluctuation [Unknown]
  - Stress [Recovered/Resolved]
  - Ejection fraction decreased [Recovered/Resolved]
  - Wrong technique in product usage process [Unknown]
  - Prescribed underdose [Unknown]
  - Product use in unapproved indication [Unknown]

NARRATIVE: CASE EVENT DATE: 20210101
